FAERS Safety Report 23149437 (Version 1)
Quarter: 2023Q4

REPORT INFORMATION
  Report Type: Spontaneous
  Country: BR (occurrence: BR)
  Receive Date: 20231106
  Receipt Date: 20231106
  Transmission Date: 20240110
  Serious: Yes (Hospitalization, Other)
  Sender: FDA-Public Use
  Company Number: BR-SUN PHARMACEUTICAL INDUSTRIES LTD-2023R1-416796

PATIENT
  Age: 32 Year
  Sex: Female

DRUGS (1)
  1. TEMOZOLOMIDE [Suspect]
     Active Substance: TEMOZOLOMIDE
     Indication: Chemotherapy
     Dosage: 15 MILLIGRAM, QD
     Route: 065

REACTIONS (4)
  - Infection [Recovering/Resolving]
  - Intermenstrual bleeding [Recovering/Resolving]
  - Pancytopenia [Recovering/Resolving]
  - Retinal haemorrhage [Recovering/Resolving]
